FAERS Safety Report 17857027 (Version 1)
Quarter: 2020Q2

REPORT INFORMATION
  Report Type: Spontaneous
  Country: US (occurrence: US)
  Receive Date: 20200603
  Receipt Date: 20200603
  Transmission Date: 20200714
  Serious: No
  Sender: FDA-Public Use
  Company Number: US-ROCHE-2384808

PATIENT
  Age: 41 Year
  Sex: Female

DRUGS (1)
  1. VALGANCICLOVIR. [Suspect]
     Active Substance: VALGANCICLOVIR
     Indication: KAPOSI^S SARCOMA
     Route: 065

REACTIONS (1)
  - Nausea [Unknown]
